FAERS Safety Report 20744660 (Version 1)
Quarter: 2022Q2

REPORT INFORMATION
  Report Type: Spontaneous
  Country: US (occurrence: US)
  Receive Date: 20220425
  Receipt Date: 20220425
  Transmission Date: 20220721
  Serious: No
  Sender: FDA-Public Use
  Company Number: US-PFIZER INC-202101152388

PATIENT
  Age: 68 Year
  Sex: Female
  Weight: 85.73 kg

DRUGS (1)
  1. CHANTIX [Suspect]
     Active Substance: VARENICLINE TARTRATE
     Indication: Smoking cessation therapy
     Dosage: 1 MG, 2X/DAY (1MG AM AND 1MG PM)
     Route: 048
     Dates: end: 20210829

REACTIONS (4)
  - Body height decreased [Unknown]
  - Asthma [Unknown]
  - Recalled product administered [Unknown]
  - Product dose omission issue [Unknown]

NARRATIVE: CASE EVENT DATE: 20210830
